FAERS Safety Report 5295712-4 (Version None)
Quarter: 2007Q2

REPORT INFORMATION
  Report Type: 
  Country: None (occurrence: None)
  Receive Date: 20070413
  Receipt Date: 20070402
  Transmission Date: 20071010
  Serious: Yes (Other)
  Sender: FDA-Public Use
  Company Number: PHBS2006JP08423

PATIENT
  Age: 79 Year
  Sex: Female

DRUGS (1)
  1. AREDIA [Suspect]
     Indication: METASTASES TO BONE
     Route: 042
     Dates: end: 20060501

REACTIONS (5)
  - BONE PAIN [None]
  - GINGIVITIS [None]
  - HAEMORRHAGIC DIATHESIS [None]
  - OSTEONECROSIS [None]
  - TOOTH EXTRACTION [None]
